FAERS Safety Report 4469265-4 (Version None)
Quarter: 2004Q4

REPORT INFORMATION
  Report Type: 
  Country: None (occurrence: None)
  Receive Date: 20041008
  Receipt Date: 20030626
  Transmission Date: 20050328
  Serious: No
  Sender: FDA-Public Use
  Company Number: US-BRISTOL-MYERS SQUIBB COMPANY-12316014

PATIENT

DRUGS (1)
  1. AVAPRO [Suspect]
     Route: 048

REACTIONS (2)
  - BACK PAIN [None]
  - HEADACHE [None]
